FAERS Safety Report 8307865-1 (Version None)
Quarter: 2012Q2

REPORT INFORMATION
  Report Type: 
  Country: None (occurrence: None)
  Receive Date: 20120424
  Receipt Date: 20120417
  Transmission Date: 20120825
  Serious: Yes (Hospitalization)
  Sender: FDA-Public Use
  Company Number: US-CELGENEUS-163-21880-12041825

PATIENT
  Sex: Male
  Weight: 68.1 kg

DRUGS (2)
  1. REVLIMID [Suspect]
     Indication: MULTIPLE MYELOMA
     Dosage: 15 MILLIGRAM
     Route: 048
     Dates: start: 20110501, end: 20120401
  2. COREG [Concomitant]
     Dosage: 3.125 MILLIGRAM
     Route: 065

REACTIONS (2)
  - RENAL FAILURE [None]
  - HYPERCALCAEMIA [None]
